FAERS Safety Report 6593960-4 (Version None)
Quarter: 2010Q1

REPORT INFORMATION
  Report Type: 
  Country: None (occurrence: None)
  Receive Date: 20100222
  Receipt Date: 20100216
  Transmission Date: 20100710
  Serious: Yes (Other)
  Sender: FDA-Public Use
  Company Number: US-JNJFOC-20100203140

PATIENT
  Age: 53 Year
  Sex: Female
  Weight: 109.32 kg

DRUGS (12)
  1. TYLENOL [Suspect]
     Route: 048
  2. TYLENOL [Suspect]
     Indication: ARTHRALGIA
     Dosage: 1300 MG 1-2 TIMES/DAY
     Route: 048
  3. CYCLOBENZAPRINE [Suspect]
     Indication: DRUG USE FOR UNKNOWN INDICATION
  4. KETOROLAC TROMETHAMINE [Suspect]
     Indication: DRUG USE FOR UNKNOWN INDICATION
  5. ACTOS [Concomitant]
     Indication: DIABETES MELLITUS
  6. LEVEMIR [Concomitant]
     Indication: DIABETES MELLITUS
     Dosage: SLIDING SCALE
  7. HYZAAR [Concomitant]
     Indication: HYPERTENSION
     Dosage: 100/25
  8. ASPIRIN [Concomitant]
     Indication: CARDIOVASCULAR EVENT PROPHYLAXIS
  9. COQ10 [Concomitant]
  10. FISH OIL [Concomitant]
  11. CINNAMON [Concomitant]
     Indication: DIABETES MELLITUS
  12. NOVOLOG [Concomitant]
     Indication: DIABETES MELLITUS

REACTIONS (4)
  - DIARRHOEA [None]
  - HAEMATOCHEZIA [None]
  - HEADACHE [None]
  - PRODUCT QUALITY ISSUE [None]
